FAERS Safety Report 8899285 (Version 2)
Quarter: 2013Q1

REPORT INFORMATION
  Report Type: Spontaneous
  Country: US (occurrence: US)
  Receive Date: 20121109
  Receipt Date: 20130124
  Transmission Date: 20140127
  Serious: Yes (Other)
  Sender: FDA-Public Use
  Company Number: US-GLAXOSMITHKLINE-A1000278A

PATIENT
  Age: 26 Year
  Sex: Female

DRUGS (9)
  1. BENLYSTA [Suspect]
     Indication: SYSTEMIC LUPUS ERYTHEMATOSUS
     Route: 042
     Dates: start: 201205, end: 20120731
  2. PLAQUENIL [Concomitant]
  3. LYRICA [Concomitant]
  4. ZOLOFT [Concomitant]
  5. WELLBUTRIN [Concomitant]
     Route: 048
  6. IBUPROFEN [Concomitant]
  7. VICODIN [Concomitant]
  8. UNSPECIFIED MEDICATION [Concomitant]
     Indication: FIBROMYALGIA
  9. UNSPECIFIED MEDICATION [Concomitant]
     Indication: ARTHRITIS

REACTIONS (5)
  - Exposure during pregnancy [Not Recovered/Not Resolved]
  - Abortion spontaneous [Unknown]
  - Staphylococcal infection [Unknown]
  - Cystitis [Unknown]
  - Urinary tract infection [Unknown]
